FAERS Safety Report 5265638-0 (Version None)
Quarter: 2007Q1

REPORT INFORMATION
  Report Type: 
  Country: None (occurrence: None)
  Receive Date: 20061213
  Receipt Date: 20020809
  Transmission Date: 20070707
  Serious: Yes (Hospitalization)
  Sender: FDA-Public Use
  Company Number: 2002UW08219

PATIENT
  Age: 64 Year
  Sex: Female

DRUGS (9)
  1. NOLVADEX [Suspect]
     Indication: BREAST CANCER
     Dosage: 20 MG QD PO
     Route: 048
     Dates: start: 19991202
  2. FLONASE [Concomitant]
  3. ULTRAM [Concomitant]
  4. LEVOTHYROXINE SODIUM [Concomitant]
  5. CLARITIN [Concomitant]
  6. ADVIL [Concomitant]
  7. ASPIRIN [Concomitant]
  8. NASONEX [Concomitant]
  9. COZAAR [Concomitant]

REACTIONS (1)
  - CATARACT [None]
